FAERS Safety Report 5423409-6 (Version None)
Quarter: 2007Q3

REPORT INFORMATION
  Report Type: 
  Country: None (occurrence: None)
  Receive Date: 20070727
  Receipt Date: 20070421
  Transmission Date: 20080115
  Serious: No
  Sender: FDA-Public Use
  Company Number: 263273

PATIENT
  Sex: 0

DRUGS (3)
  1. LEVEMIR [Suspect]
     Indication: DIABETES MELLITUS
     Dosage: 10 IU, QD, SUBCUTANEOUS   14 IU, QD, SUBCUTANEOUS   20 IU, QD, SUBCUTANEOUS
     Route: 058
  2. ACTOS [Concomitant]
  3. BYETTA (EXENATIDE, EXENATIDE) [Concomitant]

REACTIONS (1)
  - GLYCOSYLATED HAEMOGLOBIN INCREASED [None]
